FAERS Safety Report 9041942 (Version 1)
Quarter: 2013Q1

REPORT INFORMATION
  Report Type: Report from Study
  Country: US (occurrence: US)
  Receive Date: 20130129
  Receipt Date: 20130129
  Transmission Date: 20140127
  Serious: No
  Sender: FDA-Public Use
  Company Number: US-ABBOTT-12P-163-0901633-00

PATIENT
  Age: 38 Year
  Sex: Female
  Weight: 115.77 kg

DRUGS (3)
  1. HUMIRA 40 MG/0.8 ML PEN [Suspect]
     Indication: ANKYLOSING SPONDYLITIS
     Dates: start: 20120105
  2. TRAMADOL [Concomitant]
     Indication: PAIN
  3. ULTRAM [Concomitant]
     Indication: PAIN

REACTIONS (6)
  - Device malfunction [Recovered/Resolved]
  - Local swelling [Not Recovered/Not Resolved]
  - Skin discolouration [Not Recovered/Not Resolved]
  - Erythema [Not Recovered/Not Resolved]
  - Incorrect route of drug administration [Recovered/Resolved]
  - Incorrect dose administered [Unknown]
